FAERS Safety Report 23222381 (Version 1)
Quarter: 2023Q4

REPORT INFORMATION
  Report Type: Spontaneous
  Country: JP (occurrence: JP)
  Receive Date: 20231123
  Receipt Date: 20231123
  Transmission Date: 20240110
  Serious: Yes (Other)
  Sender: FDA-Public Use
  Company Number: JP-TAIHO-2023-009859

PATIENT
  Age: 80 Year
  Sex: Male
  Weight: 65 kg

DRUGS (4)
  1. ABRAXANE [Suspect]
     Active Substance: PACLITAXEL
     Indication: Pancreatic carcinoma
     Dosage: ON DAYS 1, 8, AND 15 OF EACH 28-DAY CYCLE?DAILY DOSE: 170 MILLIGRAM(S)
     Route: 041
     Dates: start: 20220815
  2. ABRAXANE [Suspect]
     Active Substance: PACLITAXEL
     Dosage: DAILY DOSE: 170 MILLIGRAM(S)
     Route: 041
     Dates: start: 20221212, end: 20230910
  3. GEMCITABINE HYDROCHLORIDE [Concomitant]
     Active Substance: GEMCITABINE HYDROCHLORIDE
     Indication: Pancreatic carcinoma
     Dosage: DOSE NOT REPORTED, ON DAYS 1, 8, AND 15 OF EACH 28-DAY CYCLE
     Route: 041
     Dates: start: 20220815
  4. GEMCITABINE HYDROCHLORIDE [Concomitant]
     Active Substance: GEMCITABINE HYDROCHLORIDE
     Dosage: DOSE NOT REPORTED
     Route: 041
     Dates: start: 20221212

REACTIONS (1)
  - Macular oedema [Recovering/Resolving]
